FAERS Safety Report 10426435 (Version 1)
Quarter: 2014Q3

REPORT INFORMATION
  Report Type: Spontaneous
  Country: US (occurrence: None)
  Receive Date: 20140902
  Receipt Date: 20140902
  Transmission Date: 20150326
  Serious: Yes (Hospitalization)
  Sender: FDA-Public Use
  Company Number: None

PATIENT
  Age: 20 Year
  Sex: Female
  Weight: 53 kg

DRUGS (1)
  1. GADAVIST [Suspect]
     Active Substance: GADOBUTROL
     Indication: NUCLEAR MAGNETIC RESONANCE IMAGING
     Route: 042
     Dates: start: 20140814, end: 20140814

REACTIONS (5)
  - Dyspnoea [None]
  - Pallor [None]
  - Lip discolouration [None]
  - Contrast media reaction [None]
  - Skin discolouration [None]

NARRATIVE: CASE EVENT DATE: 20140814
